FAERS Safety Report 20349905 (Version 1)
Quarter: 2022Q1

REPORT INFORMATION
  Report Type: Spontaneous
  Country: US (occurrence: None)
  Receive Date: 20220117
  Receipt Date: 20220117
  Transmission Date: 20220423
  Serious: Yes (Death)
  Sender: FDA-Public Use
  Company Number: None

PATIENT
  Sex: Female

DRUGS (21)
  1. ACTEMRA [Suspect]
     Active Substance: TOCILIZUMAB
     Indication: Rheumatoid arthritis
     Dosage: OTHER FREQUENCY : ONCE A WEEK;?
     Route: 058
     Dates: start: 20150326
  2. CARBIDOPA\LEVODOPA [Concomitant]
     Active Substance: CARBIDOPA\LEVODOPA
  3. DICLOFENAC [Concomitant]
     Active Substance: DICLOFENAC
  4. FENOFIBRATE [Concomitant]
     Active Substance: FENOFIBRATE
  5. FUROSEMIDE [Concomitant]
     Active Substance: FUROSEMIDE
  6. IBUPROFEN [Concomitant]
     Active Substance: IBUPROFEN
  7. LEVOTHYROXINE [Concomitant]
     Active Substance: LEVOTHYROXINE
  8. LIDOCAINE [Concomitant]
     Active Substance: LIDOCAINE
  9. LORAZEPAM [Concomitant]
     Active Substance: LORAZEPAM
  10. LUMIGAN [Concomitant]
     Active Substance: BIMATOPROST
  11. METOPROLOL [Concomitant]
     Active Substance: METOPROLOL
  12. MYRBETRIQ [Concomitant]
     Active Substance: MIRABEGRON
  13. NEUPRO [Concomitant]
     Active Substance: ROTIGOTINE
  14. OMEPRAZOLE [Concomitant]
     Active Substance: OMEPRAZOLE
  15. PREDNISONE [Concomitant]
     Active Substance: PREDNISONE
  16. PREGABALIN [Concomitant]
     Active Substance: PREGABALIN
  17. PROLIA [Concomitant]
     Active Substance: DENOSUMAB
  18. RASAGILINE [Concomitant]
     Active Substance: RASAGILINE
  19. RESTASIS [Concomitant]
     Active Substance: CYCLOSPORINE
  20. SPIRONOLACTONE [Concomitant]
     Active Substance: SPIRONOLACTONE
  21. TYLENOL [Concomitant]
     Active Substance: ACETAMINOPHEN

REACTIONS (1)
  - Death [None]
